FAERS Safety Report 20788253 (Version 5)
Quarter: 2022Q2

REPORT INFORMATION
  Report Type: Report from Study
  Country: CO (occurrence: CO)
  Receive Date: 20220505
  Receipt Date: 20220629
  Transmission Date: 20220721
  Serious: Yes (Death, Hospitalization, Other)
  Sender: FDA-Public Use
  Company Number: CO-ABBVIE-22K-036-4353100-00

PATIENT
  Sex: Female

DRUGS (5)
  1. VENETOCLAX [Suspect]
     Active Substance: VENETOCLAX
     Indication: Acute myeloid leukaemia
     Route: 048
     Dates: start: 20220407, end: 20220409
  2. VENETOCLAX [Suspect]
     Active Substance: VENETOCLAX
     Route: 048
     Dates: start: 20220410, end: 20220410
  3. VENETOCLAX [Suspect]
     Active Substance: VENETOCLAX
     Route: 048
     Dates: start: 20220504, end: 20220517
  4. FLUCONAZOLE [Concomitant]
     Active Substance: FLUCONAZOLE
     Indication: Ulcer
     Route: 048
     Dates: start: 20220407
  5. AZACITIDINE [Concomitant]
     Active Substance: AZACITIDINE
     Indication: Neoplasm prophylaxis
     Dosage: DURING 7 DAYS EVERY 28 DAYS
     Route: 058
     Dates: start: 20220407, end: 20220413

REACTIONS (17)
  - Cardio-respiratory arrest [Fatal]
  - Fall [Unknown]
  - Pulmonary oedema [Recovering/Resolving]
  - Seizure [Not Recovered/Not Resolved]
  - General physical health deterioration [Not Recovered/Not Resolved]
  - Hypokalaemia [Not Recovered/Not Resolved]
  - Thrombocytopenia [Not Recovered/Not Resolved]
  - Thrombocytopenia [Recovered/Resolved]
  - Hyponatraemia [Not Recovered/Not Resolved]
  - Neutropenia [Not Recovered/Not Resolved]
  - Haemoglobin decreased [Unknown]
  - Off label use [Not Recovered/Not Resolved]
  - Tremor [Not Recovered/Not Resolved]
  - Pallor [Not Recovered/Not Resolved]
  - Bedridden [Not Recovered/Not Resolved]
  - Mouth haemorrhage [Recovered/Resolved]
  - Pyrexia [Recovered/Resolved]

NARRATIVE: CASE EVENT DATE: 20220101
